FAERS Safety Report 10008037 (Version 1)
Quarter: 2014Q1

REPORT INFORMATION
  Report Type: Other
  Country: FR (occurrence: FR)
  Receive Date: 20140313
  Receipt Date: 20140313
  Transmission Date: 20141002
  Serious: Yes (Hospitalization)
  Sender: FDA-Public Use
  Company Number: FR-TAKEDA-2014TEU002030

PATIENT
  Age: 50 Year
  Sex: Female

DRUGS (6)
  1. OGASTORO [Suspect]
     Indication: PRODUCT USED FOR UNKNOWN INDICATION
     Dosage: 30 MG, UNK
     Route: 048
  2. STAGID [Suspect]
     Indication: PRODUCT USED FOR UNKNOWN INDICATION
     Route: 048
  3. SERETIDE [Suspect]
     Indication: PRODUCT USED FOR UNKNOWN INDICATION
     Route: 050
  4. TERBUTALINE [Suspect]
     Indication: PRODUCT USED FOR UNKNOWN INDICATION
     Route: 050
  5. BUDESONIDE [Suspect]
     Indication: PRODUCT USED FOR UNKNOWN INDICATION
     Route: 050
  6. SINGULAIR [Suspect]
     Indication: PRODUCT USED FOR UNKNOWN INDICATION
     Route: 048

REACTIONS (1)
  - Macroglossia [Recovered/Resolved]
